FAERS Safety Report 8353245-2 (Version None)
Quarter: 2012Q2

REPORT INFORMATION
  Report Type: 
  Country: None (occurrence: None)
  Receive Date: 20120511
  Receipt Date: 20120503
  Transmission Date: 20120825
  Serious: Yes (Other)
  Sender: FDA-Public Use
  Company Number: US-AMGEN-USASP2012014701

PATIENT
  Age: 18 Year
  Sex: Male

DRUGS (4)
  1. ENBREL [Suspect]
     Indication: PSORIASIS
     Dosage: 50 MG, 2 TIMES/WK
     Route: 058
     Dates: start: 20110113
  2. DOVONEX [Concomitant]
     Dosage: UNK
  3. CLOBETASOL PROPIONATE [Concomitant]
     Dosage: UNK
  4. TACLONEX [Concomitant]
     Dosage: UNK

REACTIONS (1)
  - BIPOLAR DISORDER [None]
